APPROVED DRUG PRODUCT: MITOMYCIN
Active Ingredient: MITOMYCIN
Strength: 40MG/VIAL
Dosage Form/Route: INJECTABLE;INJECTION
Application: A064117 | Product #003 | TE Code: AP
Applicant: HIKMA PHARMACEUTICALS USA INC
Approved: Jun 2, 1999 | RLD: No | RS: No | Type: RX